FAERS Safety Report 19598031 (Version 1)
Quarter: 2021Q3

REPORT INFORMATION
  Report Type: Spontaneous
  Country: US (occurrence: US)
  Receive Date: 20210722
  Receipt Date: 20210722
  Transmission Date: 20211014
  Serious: No
  Sender: FDA-Public Use
  Company Number: None

PATIENT
  Age: 64 Year
  Sex: Male
  Weight: 75.15 kg

DRUGS (11)
  1. PROCHLORPERAZINE 10MG [Concomitant]
  2. ACETAMINOPHEN 325MG [Concomitant]
  3. CAPECITABINE. [Suspect]
     Active Substance: CAPECITABINE
     Indication: COLORECTAL CANCER
     Route: 048
     Dates: start: 20210210
  4. ASPIRIN 81MG [Concomitant]
     Active Substance: ASPIRIN
  5. DOCUSATE [Concomitant]
     Active Substance: DOCUSATE
  6. NAPROXEN 500MG [Concomitant]
     Active Substance: NAPROXEN
  7. MULTIVITAMIN [Concomitant]
     Active Substance: VITAMINS
  8. FEROSUL 325MG [Concomitant]
  9. LISINOPRIL?HYDROCHLOROTHIAZIDE 10?12.5MG [Concomitant]
  10. SIMETHICONE 80MG [Concomitant]
  11. OXYCODONE 5MG [Concomitant]
     Active Substance: OXYCODONE

REACTIONS (2)
  - Nausea [None]
  - Rash [None]

NARRATIVE: CASE EVENT DATE: 20210722
